FAERS Safety Report 19005576 (Version 1)
Quarter: 2021Q1

REPORT INFORMATION
  Report Type: Spontaneous
  Country: CA (occurrence: CA)
  Receive Date: 20210313
  Receipt Date: 20210313
  Transmission Date: 20210420
  Serious: Yes (Other)
  Sender: FDA-Public Use
  Company Number: NVSC2021CA053325

PATIENT
  Sex: Female

DRUGS (9)
  1. CAELYX [Suspect]
     Active Substance: DOXORUBICIN HYDROCHLORIDE
     Indication: SEROUS CYSTADENOCARCINOMA OVARY
     Dosage: UNK (11 CYCLES)
     Route: 065
     Dates: start: 2019
  2. FULVESTRANT. [Suspect]
     Active Substance: FULVESTRANT
     Indication: SEROUS CYSTADENOCARCINOMA OVARY
     Dosage: 250 MG, BID
     Route: 065
     Dates: start: 20210113
  3. TAMOXIFEN [Suspect]
     Active Substance: TAMOXIFEN
     Indication: SEROUS CYSTADENOCARCINOMA OVARY
     Dosage: UNK
     Route: 065
     Dates: start: 2018
  4. MEGACE [Suspect]
     Active Substance: MEGESTROL ACETATE
     Indication: SEROUS CYSTADENOCARCINOMA OVARY
     Dosage: UNK
     Route: 065
     Dates: start: 2018
  5. CARBOPLATIN. [Suspect]
     Active Substance: CARBOPLATIN
     Indication: SEROUS CYSTADENOCARCINOMA OVARY
     Dosage: UNK (AUC?T/ TAXOL 4 CYCLES)
     Route: 065
     Dates: start: 2018
  6. METFORMIN [Suspect]
     Active Substance: METFORMIN HYDROCHLORIDE
     Indication: SEROUS CYSTADENOCARCINOMA OVARY
     Dosage: UNK (START DATE UNKNOWN 2021)
     Route: 065
  7. IBRANCE [Suspect]
     Active Substance: PALBOCICLIB
     Indication: SEROUS CYSTADENOCARCINOMA OVARY
     Dosage: 125 MG (21 DAYS OF 28 DAYS)
     Route: 048
     Dates: start: 20210113
  8. LETROZOLE. [Suspect]
     Active Substance: LETROZOLE
     Indication: SEROUS CYSTADENOCARCINOMA OVARY
     Dosage: UNK (START DATE UNKNOWN 2021)
     Route: 065
  9. GEMCITABINE. [Suspect]
     Active Substance: GEMCITABINE
     Indication: SEROUS CYSTADENOCARCINOMA OVARY
     Dosage: 800 MG/M2 (6 CYCLES)
     Route: 065
     Dates: start: 2019

REACTIONS (3)
  - Serous cystadenocarcinoma ovary [Unknown]
  - Malignant neoplasm progression [Unknown]
  - Off label use [Unknown]
